FAERS Safety Report 9712911 (Version 1)
Quarter: 2013Q4

REPORT INFORMATION
  Report Type: Report from Study
  Country: US (occurrence: US)
  Receive Date: 20131126
  Receipt Date: 20131126
  Transmission Date: 20140711
  Serious: Yes (Hospitalization)
  Sender: FDA-Public Use
  Company Number: US-JNJFOC-20131111752

PATIENT
  Age: 60 Year
  Sex: Female
  Weight: 77.11 kg

DRUGS (7)
  1. REMICADE [Suspect]
     Indication: CROHN^S DISEASE
     Dosage: 4 BOTTLES
     Route: 042
     Dates: start: 200411, end: 20131008
  2. MAXIDE [Concomitant]
     Indication: FLUID RETENTION
     Dosage: 75/50 (UNITS UNSPECIFIED)
     Route: 048
     Dates: end: 201310
  3. LOMOTIL [Concomitant]
     Indication: DIARRHOEA
     Route: 048
     Dates: end: 201310
  4. PENTASA [Concomitant]
     Indication: CROHN^S DISEASE
     Dosage: 2 PILLS
     Route: 048
  5. POTASSIUM CHLORIDE [Concomitant]
     Indication: BLOOD POTASSIUM DECREASED
     Route: 048
  6. POTASSIUM CHLORIDE [Concomitant]
     Indication: MUSCLE SPASMS
     Route: 048
  7. ROPINIROLE [Concomitant]
     Indication: RESTLESS LEGS SYNDROME
     Route: 048
     Dates: start: 201305

REACTIONS (2)
  - Guillain-Barre syndrome [Not Recovered/Not Resolved]
  - Abnormal loss of weight [Not Recovered/Not Resolved]
